FAERS Safety Report 6738994-1 (Version None)
Quarter: 2010Q2

REPORT INFORMATION
  Report Type: 
  Country: None (occurrence: None)
  Receive Date: 20100524
  Receipt Date: 20100524
  Transmission Date: 20101027
  Serious: No
  Sender: FDA-Public Use
  Company Number: None

PATIENT
  Sex: Female
  Weight: 50 kg

DRUGS (1)
  1. SINGULAIR [Suspect]
     Indication: HYPERSENSITIVITY
     Dosage: 10MG QHS ORAL
     Route: 048
     Dates: start: 20100507

REACTIONS (3)
  - ALCOHOL USE [None]
  - HEADACHE [None]
  - NO THERAPEUTIC RESPONSE [None]
